FAERS Safety Report 9449641 (Version 1)
Quarter: 2013Q3

REPORT INFORMATION
  Report Type: Spontaneous
  Country: US (occurrence: US)
  Receive Date: 20130809
  Receipt Date: 20130809
  Transmission Date: 20140515
  Serious: No
  Sender: FDA-Public Use
  Company Number: US-PFIZER INC-2013229328

PATIENT
  Age: 88 Year
  Sex: Male
  Weight: 73.47 kg

DRUGS (4)
  1. XALATAN [Suspect]
     Dosage: UNK, ONCE A DAY AT BEDTIME ABOUT 11PM
  2. LATANOPROST [Suspect]
     Indication: INTRAOCULAR PRESSURE INCREASED
     Dosage: UNK, ONCE A DAY
     Route: 047
  3. COSOPT [Suspect]
     Indication: INTRAOCULAR PRESSURE INCREASED
     Dosage: UNK, ONCE A DAY
     Route: 047
  4. COSOPT [Suspect]
     Dosage: UNK, ONCE A DAY
     Route: 047

REACTIONS (9)
  - Drug effect incomplete [Unknown]
  - Sinus disorder [Recovered/Resolved]
  - Sneezing [Unknown]
  - Sinus congestion [Unknown]
  - Fatigue [Recovered/Resolved]
  - Intraocular pressure increased [Unknown]
  - Visual field defect [Unknown]
  - Red blood cell count decreased [Unknown]
  - Red cell distribution width increased [Unknown]
